FAERS Safety Report 25155175 (Version 1)
Quarter: 2025Q2

REPORT INFORMATION
  Report Type: Other
  Country: PL (occurrence: PL)
  Receive Date: 20250403
  Receipt Date: 20250403
  Transmission Date: 20250717
  Serious: Yes (Hospitalization)
  Sender: ANI
  Company Number: PL-ANIPHARMA-022201

PATIENT
  Age: 29 Year
  Sex: Female

DRUGS (5)
  1. PENICILLAMINE [Suspect]
     Active Substance: PENICILLAMINE
     Indication: Hepato-lenticular degeneration
  2. ZINC [Concomitant]
     Active Substance: ZINC
     Indication: Hepato-lenticular degeneration
  3. ALBUMIN HUMAN [Concomitant]
     Active Substance: ALBUMIN HUMAN
     Indication: Evidence based treatment
  4. RIFAXIMIN [Concomitant]
     Active Substance: RIFAXIMIN
     Indication: Evidence based treatment
  5. LACTULOSE [Concomitant]
     Active Substance: LACTULOSE
     Indication: Evidence based treatment

REACTIONS (1)
  - Treatment noncompliance [Unknown]
